FAERS Safety Report 21819249 (Version 2)
Quarter: 2023Q4

REPORT INFORMATION
  Report Type: Report from Study
  Country: NO (occurrence: NO)
  Receive Date: 20230104
  Receipt Date: 20231109
  Transmission Date: 20240109
  Serious: Yes (Congenital Anomaly, Other)
  Sender: FDA-Public Use
  Company Number: DK-JNJFOC-20221214540

PATIENT

DRUGS (4)
  1. TOPIRAMATE [Suspect]
     Active Substance: TOPIRAMATE
     Indication: Epilepsy
     Route: 064
  2. TOPIRAMATE [Suspect]
     Active Substance: TOPIRAMATE
     Indication: Bipolar disorder
  3. TOPIRAMATE [Suspect]
     Active Substance: TOPIRAMATE
     Indication: Cluster headache
  4. TOPIRAMATE [Suspect]
     Active Substance: TOPIRAMATE
     Indication: Pain

REACTIONS (11)
  - Congenital anomaly [Unknown]
  - Heart disease congenital [Unknown]
  - Cleft lip and palate [Unknown]
  - Congenital genital malformation [Unknown]
  - Congenital musculoskeletal disorder of limbs [Unknown]
  - Hypospadias [Unknown]
  - Talipes [Unknown]
  - Urinary tract malformation [Unknown]
  - Gastrointestinal disorder [Unknown]
  - Nervous system disorder [Unknown]
  - Foetal exposure during pregnancy [Unknown]
